FAERS Safety Report 9605025 (Version 1)
Quarter: 2013Q4

REPORT INFORMATION
  Report Type: Spontaneous
  Country: US (occurrence: US)
  Receive Date: 20131008
  Receipt Date: 20131008
  Transmission Date: 20140711
  Serious: Yes (Hospitalization)
  Sender: FDA-Public Use
  Company Number: US-VIROPHARMA INCORPORATED-20130924CINRY5050

PATIENT
  Age: 49 Year
  Sex: Female

DRUGS (3)
  1. CINRYZE (C1 ESTERASE INHIBITOR (HUMAN)) [Suspect]
     Indication: HEREDITARY ANGIOEDEMA
     Dates: start: 20130325, end: 201309
  2. CINRYZE (C1 ESTERASE INHIBITOR (HUMAN)) [Suspect]
     Indication: PROPHYLAXIS
     Dates: start: 201309, end: 201309
  3. CINRYZE (C1 ESTERASE INHIBITOR (HUMAN)) [Suspect]
     Dates: start: 201309

REACTIONS (3)
  - Tooth extraction [Recovered/Resolved]
  - Hereditary angioedema [Recovered/Resolved]
  - Therapy change [Recovered/Resolved]
